FAERS Safety Report 8393885-8 (Version None)
Quarter: 2012Q2

REPORT INFORMATION
  Report Type: 
  Country: None (occurrence: None)
  Receive Date: 20120516
  Receipt Date: 20120510
  Transmission Date: 20120825
  Serious: Yes (Hospitalization)
  Sender: FDA-Public Use
  Company Number: 2012SP024878

PATIENT
  Age: 36 Year
  Sex: Female
  Weight: 52.3 kg

DRUGS (5)
  1. TEMOZOLOMIDE [Suspect]
     Indication: GLIOMA
     Dosage: 75 MG/M2;UNK;PO
     Route: 048
     Dates: start: 20110404, end: 20110513
  2. DILANTIN [Concomitant]
  3. LORAZEPAM [Concomitant]
  4. BACTRIM DS [Concomitant]
  5. DEXAMETHASONE [Concomitant]

REACTIONS (4)
  - FATIGUE [None]
  - NAUSEA [None]
  - UPPER RESPIRATORY TRACT INFECTION [None]
  - DEHYDRATION [None]
